FAERS Safety Report 9555467 (Version 1)
Quarter: 2013Q3

REPORT INFORMATION
  Report Type: Spontaneous
  Country: IT (occurrence: IT)
  Receive Date: 20130926
  Receipt Date: 20130926
  Transmission Date: 20140515
  Serious: Yes (Other)
  Sender: FDA-Public Use
  Company Number: PHHY2013IT104071

PATIENT
  Age: 76 Year
  Sex: Female

DRUGS (5)
  1. ATENOLOL [Suspect]
     Dosage: 25 MG, QD
     Route: 048
     Dates: start: 20130101, end: 20130816
  2. OSIPINE [Suspect]
     Dosage: 10 MG, QD
     Route: 048
     Dates: start: 20130101, end: 20130816
  3. RYTMONORM [Concomitant]
  4. ZOPRANOL [Concomitant]
  5. COUMADINE [Concomitant]

REACTIONS (1)
  - Presyncope [Recovering/Resolving]
